FAERS Safety Report 18812728 (Version 1)
Quarter: 2021Q1

REPORT INFORMATION
  Report Type: Spontaneous
  Country: US (occurrence: US)
  Receive Date: 20210131
  Receipt Date: 20210131
  Transmission Date: 20210419
  Serious: No
  Sender: FDA-Public Use
  Company Number: US-LUPIN PHARMACEUTICALS INC.-2021-00837

PATIENT
  Age: 72 Year
  Sex: Female

DRUGS (5)
  1. OSIMERTINIB. [Concomitant]
     Active Substance: OSIMERTINIB
     Indication: LUNG ADENOCARCINOMA STAGE IV
     Dosage: UNK
     Route: 065
  2. TRETINOIN. [Suspect]
     Active Substance: TRETINOIN
     Indication: ERYTHEMA DYSCHROMICUM PERSTANS
     Dosage: UNK
     Route: 065
  3. TACROLIMUS. [Suspect]
     Active Substance: TACROLIMUS
     Indication: ERYTHEMA DYSCHROMICUM PERSTANS
     Dosage: UNK
     Route: 065
  4. FLUOCINOLONE [Suspect]
     Active Substance: FLUOCINOLONE
     Indication: ERYTHEMA DYSCHROMICUM PERSTANS
     Dosage: UNK,OINTMENT
     Route: 065
  5. HYDROQUINONE. [Suspect]
     Active Substance: HYDROQUINONE
     Indication: ERYTHEMA DYSCHROMICUM PERSTANS
     Dosage: UNK
     Route: 065

REACTIONS (1)
  - Therapeutic product effect decreased [Unknown]
